FAERS Safety Report 9850443 (Version 4)
Quarter: 2014Q2

REPORT INFORMATION
  Report Type: Report from Study
  Country: NL (occurrence: NL)
  Receive Date: 20140128
  Receipt Date: 20140429
  Transmission Date: 20141212
  Serious: Yes (Life-Threatening, Hospitalization)
  Sender: FDA-Public Use
  Company Number: NL-JNJFOC-20140113989

PATIENT
  Age: 65 Year
  Sex: Male
  Weight: 89.8 kg

DRUGS (10)
  1. CANAGLIFLOZIN [Suspect]
     Route: 048
  2. CANAGLIFLOZIN [Suspect]
     Indication: TYPE 2 DIABETES MELLITUS
     Route: 048
     Dates: start: 20100429, end: 20140123
  3. METFORMIN [Concomitant]
     Indication: TYPE 2 DIABETES MELLITUS
     Dates: start: 2007
  4. LANTUS [Concomitant]
     Indication: TYPE 2 DIABETES MELLITUS
     Dates: start: 20130820
  5. LANTUS [Concomitant]
     Indication: TYPE 2 DIABETES MELLITUS
     Dates: start: 20090406, end: 20100207
  6. LANTUS [Concomitant]
     Indication: TYPE 2 DIABETES MELLITUS
     Dates: start: 20100208, end: 20130819
  7. ENALAPRIL [Concomitant]
     Indication: HYPERTENSION
     Route: 048
  8. ENALAPRIL [Concomitant]
     Indication: HYPERTENSION
     Route: 048
  9. VAXIGRIP [Concomitant]
     Indication: ANTIVIRAL PROPHYLAXIS
     Route: 058
  10. MACROGOL [Concomitant]
     Indication: ADVERSE EVENT
     Route: 048

REACTIONS (1)
  - Clear cell renal cell carcinoma [Not Recovered/Not Resolved]
